FAERS Safety Report 4563685-5 (Version None)
Quarter: 2005Q1

REPORT INFORMATION
  Report Type: 
  Country: None (occurrence: None)
  Receive Date: 20050124
  Receipt Date: 20050110
  Transmission Date: 20050727
  Serious: No
  Sender: FDA-Public Use
  Company Number: K200500028

PATIENT
  Age: 5 Year
  Sex: Male
  Weight: 16 kg

DRUGS (1)
  1. NORDETTE-21 [Suspect]
     Dosage: 12 TABLETS, SINGLE, ORAL
     Route: 048
     Dates: start: 20041216, end: 20041216

REACTIONS (2)
  - ACCIDENTAL EXPOSURE [None]
  - OVERDOSE [None]
